FAERS Safety Report 6042182-4 (Version None)
Quarter: 2009Q1

REPORT INFORMATION
  Report Type: 
  Country: None (occurrence: None)
  Receive Date: 20090116
  Receipt Date: 20090115
  Transmission Date: 20090719
  Serious: Yes (Death, Other)
  Sender: FDA-Public Use
  Company Number: CA-ASTRAZENECA-2009UW01263

PATIENT
  Age: 43 Year
  Sex: Female

DRUGS (5)
  1. SEROQUEL [Suspect]
     Dosage: 300MG; 2 EVERY ONE DAY
     Route: 048
  2. AVELOX [Interacting]
     Dosage: 300MG
  3. NEXIUM [Concomitant]
  4. RISPERDAL [Concomitant]
  5. VALPROIC ACID [Concomitant]

REACTIONS (2)
  - DRUG INTERACTION [None]
  - ELECTROCARDIOGRAM QT PROLONGED [None]
